FAERS Safety Report 18437403 (Version 2)
Quarter: 2021Q3

REPORT INFORMATION
  Report Type: Report from Study
  Country: US (occurrence: US)
  Receive Date: 20201028
  Receipt Date: 20210805
  Transmission Date: 20211014
  Serious: No
  Sender: FDA-Public Use
  Company Number: NVSC2020US289210

PATIENT
  Sex: Female

DRUGS (2)
  1. ENTRESTO [Suspect]
     Active Substance: SACUBITRIL\VALSARTAN
     Indication: HYPERTENSION
     Dosage: 100 MG (INITIALLY PRESCRIBED TO TAKE 49/51 MG DOSE)
     Route: 048
     Dates: start: 202010
  2. ENTRESTO [Suspect]
     Active Substance: SACUBITRIL\VALSARTAN
     Dosage: 100 MG, Q6H (RECENTLY CHANGED TO 49/51 MG 2X IN THE MORNING AND 2X AT NIGHT  )
     Route: 048

REACTIONS (2)
  - Drug effective for unapproved indication [Unknown]
  - Weight increased [Unknown]
